FAERS Safety Report 9340573 (Version 1)
Quarter: 2013Q2

REPORT INFORMATION
  Report Type: Spontaneous
  Country: US (occurrence: US)
  Receive Date: 20130610
  Receipt Date: 20130610
  Transmission Date: 20140414
  Serious: Yes (Hospitalization)
  Sender: FDA-Public Use
  Company Number: US-GLAXOSMITHKLINE-A0790596A

PATIENT
  Age: 61 Year
  Sex: Male
  Weight: 131.4 kg

DRUGS (3)
  1. AVANDIA [Suspect]
     Indication: DIABETES MELLITUS
     Route: 048
     Dates: start: 20010511
  2. AVANDARYL [Suspect]
     Indication: DIABETES MELLITUS
     Route: 048
     Dates: start: 20061025
  3. AMARYL [Concomitant]
     Dosage: 2MG PER DAY
     Dates: start: 20051019

REACTIONS (3)
  - Myocardial infarction [Unknown]
  - Angina unstable [Unknown]
  - Renal failure chronic [Unknown]
